FAERS Safety Report 7206351-X (Version None)
Quarter: 2010Q4

REPORT INFORMATION
  Report Type: 
  Country: None (occurrence: None)
  Receive Date: 20101221
  Receipt Date: 20101204
  Transmission Date: 20110411
  Serious: Yes (Other)
  Sender: FDA-Public Use
  Company Number: 2010AP002597

PATIENT
  Age: 26 Year
  Sex: Male

DRUGS (1)
  1. CITALOPRAM HYDROBROMIDE [Suspect]
     Indication: DEPRESSION
     Dosage: 20 MG;QD;PO, 40 MG;QID
     Route: 048

REACTIONS (4)
  - AKATHISIA [None]
  - CONDITION AGGRAVATED [None]
  - DEPRESSION [None]
  - TARDIVE DYSKINESIA [None]
